FAERS Safety Report 8299916 (Version 4)
Quarter: 2012Q4

REPORT INFORMATION
  Report Type: 
  Country: DE (occurrence: DE)
  Receive Date: 20111219
  Receipt Date: 20121206
  Transmission Date: 20130627
  Serious: Yes (Death, Hospitalization)
  Sender: FDA-Public Use
  Company Number: PHHO2011DE020782

PATIENT
  Age: 68 Year
  Sex: Male

DRUGS (2)
  1. AFINITOR [Suspect]
     Indication: NEUROENDOCRINE TUMOUR
     Dosage: 10 mg, UNK
     Route: 048
     Dates: start: 20110831, end: 20111211
  2. AFINITOR [Suspect]
     Dosage: 10 mg, UNK
     Route: 048
     Dates: start: 20111222

REACTIONS (2)
  - Ascites [Recovering/Resolving]
  - Oedema [Fatal]
